FAERS Safety Report 8064569-0 (Version None)
Quarter: 2012Q1

REPORT INFORMATION
  Report Type: 
  Country: None (occurrence: None)
  Receive Date: 20120123
  Receipt Date: 20120116
  Transmission Date: 20120608
  Serious: Yes (Hospitalization)
  Sender: FDA-Public Use
  Company Number: BR-ASTRAZENECA-2012SE03467

PATIENT
  Age: 72 Year
  Sex: Female
  Weight: 66 kg

DRUGS (9)
  1. METOPROLOL SUCCINATE [Suspect]
     Indication: VASCULAR STENOSIS
     Route: 048
     Dates: start: 20080101
  2. ASA PAEDIATRIC [Concomitant]
  3. NEXIUM [Suspect]
     Indication: GASTRITIS
     Route: 048
     Dates: start: 20100101
  4. ACETAMINOPHEN [Concomitant]
     Indication: OSTEITIS DEFORMANS
  5. BRILINTA [Suspect]
     Indication: VASCULAR STENOSIS
     Route: 048
     Dates: start: 20120112
  6. CEBRALAT [Concomitant]
  7. CRESTOR [Suspect]
     Indication: BLOOD CHOLESTEROL INCREASED
     Route: 048
     Dates: start: 20080101
  8. OSTEOFORM [Concomitant]
     Indication: OSTEITIS DEFORMANS
  9. ATACAND HCT [Suspect]
     Indication: HYPERTENSION
     Dosage: 8/12.5 MG
     Route: 048
     Dates: start: 20080101

REACTIONS (4)
  - OFF LABEL USE [None]
  - CHEST PAIN [None]
  - VASCULAR STENOSIS [None]
  - DRUG INEFFECTIVE FOR UNAPPROVED INDICATION [None]
